FAERS Safety Report 5398941-4 (Version None)
Quarter: 2007Q3

REPORT INFORMATION
  Report Type: 
  Country: None (occurrence: None)
  Receive Date: 20070724
  Receipt Date: 20070724
  Transmission Date: 20080115
  Serious: Yes (Life-Threatening)
  Sender: FDA-Public Use
  Company Number: None

PATIENT
  Age: 53 Year
  Sex: Male

DRUGS (4)
  1. BEVACIZUMAB 400MG/16ML GENENTECH [Suspect]
     Indication: NON-SMALL CELL LUNG CANCER
     Dosage: 1320MG EVERY 3 WEEKS IV DRIP
     Route: 041
     Dates: start: 20070528, end: 20070528
  2. CETUXIMAB [Concomitant]
  3. PACLETAXEL [Concomitant]
  4. CARBOPLATIN [Concomitant]

REACTIONS (4)
  - OEDEMA PERIPHERAL [None]
  - OXYGEN SATURATION DECREASED [None]
  - PAIN IN EXTREMITY [None]
  - PULMONARY EMBOLISM [None]
